FAERS Safety Report 5578849-1 (Version None)
Quarter: 2007Q4

REPORT INFORMATION
  Report Type: 
  Country: None (occurrence: None)
  Receive Date: 20071228
  Receipt Date: 20071217
  Transmission Date: 20080405
  Serious: Yes (Hospitalization)
  Sender: FDA-Public Use
  Company Number: 2007BI022083

PATIENT
  Age: 49 Year
  Sex: Female

DRUGS (8)
  1. NATALIZUMAB [Suspect]
     Indication: MULTIPLE SCLEROSIS
     Dosage: 300 MG;QM;IV
     Route: 042
     Dates: start: 20070723
  2. HYDROCHLOROTHIAZIDE [Concomitant]
  3. LISINOPRIL [Concomitant]
  4. BACLOFEN [Concomitant]
  5. ZOLOFT [Concomitant]
  6. ASPIRIN [Concomitant]
  7. DETROL LA [Concomitant]
  8. VITIAMINS [Concomitant]

REACTIONS (5)
  - ABDOMINAL PAIN LOWER [None]
  - ANAEMIA [None]
  - ASTHENIA [None]
  - HAEMORRHOIDAL HAEMORRHAGE [None]
  - TACHYCARDIA [None]
